FAERS Safety Report 15505217 (Version 1)
Quarter: 2018Q4

REPORT INFORMATION
  Report Type: Spontaneous
  Country: US (occurrence: US)
  Receive Date: 20181016
  Receipt Date: 20181016
  Transmission Date: 20190205
  Serious: No
  Sender: FDA-Public Use
  Company Number: US-ASTRAZENECA-2018SF20884

PATIENT
  Age: 26264 Day
  Sex: Female
  Weight: 71.7 kg

DRUGS (2)
  1. BYDUREON BCISE [Suspect]
     Active Substance: EXENATIDE
     Indication: INSULIN-REQUIRING TYPE 2 DIABETES MELLITUS
     Route: 058
     Dates: start: 20180912
  2. METFORMIN [Concomitant]
     Active Substance: METFORMIN HYDROCHLORIDE
     Indication: TYPE 1 DIABETES MELLITUS
     Route: 048

REACTIONS (8)
  - Injection site nodule [Recovering/Resolving]
  - Diarrhoea [Recovered/Resolved]
  - Incorrect dose administered [Not Recovered/Not Resolved]
  - Injection site pruritus [Recovered/Resolved]
  - Injection site scar [Not Recovered/Not Resolved]
  - Injection site pain [Recovered/Resolved]
  - Device leakage [Recovered/Resolved]
  - Intentional device misuse [Unknown]

NARRATIVE: CASE EVENT DATE: 20180912
